FAERS Safety Report 21216241 (Version 1)
Quarter: 2022Q3

REPORT INFORMATION
  Report Type: Report from Study
  Country: US (occurrence: None)
  Receive Date: 20220816
  Receipt Date: 20220816
  Transmission Date: 20221026
  Serious: Yes (Hospitalization)
  Sender: FDA-Public Use
  Company Number: US-ROCHE-3156494

PATIENT
  Age: 37 Year
  Sex: Female
  Weight: 34.15 kg

DRUGS (11)
  1. TRASTUZUMAB [Suspect]
     Active Substance: TRASTUZUMAB
     Indication: Cervix carcinoma
     Dosage: 6 MG/KG ON DAY 1OF CYCLE 1 AND 8 MG/KG ON SUBSEQUENT CYCLES.?LAST DOSE PRIOR TO AE ONSET: 19/JUL/202
     Route: 041
     Dates: start: 20220517
  2. TUCATINIB [Suspect]
     Active Substance: TUCATINIB
     Indication: Cervix carcinoma
     Dosage: LAST DOSE PRIOR TO AE ONSET: 02/AUG/2022.
     Route: 048
     Dates: start: 20220517
  3. OMEPRAZOLE [Concomitant]
     Active Substance: OMEPRAZOLE
     Dates: start: 202004
  4. PROCHLORPERAZINE [Concomitant]
     Active Substance: PROCHLORPERAZINE
     Dates: start: 20211122
  5. TRAMADOL [Concomitant]
     Active Substance: TRAMADOL
     Dates: start: 20211110
  6. POTASSIUM CHLORIDE [Concomitant]
     Active Substance: POTASSIUM CHLORIDE
     Dates: start: 20211130
  7. HALOPERIDOL [Concomitant]
     Active Substance: HALOPERIDOL
     Dates: start: 20220426
  8. ZOLOFT [Concomitant]
     Active Substance: SERTRALINE HYDROCHLORIDE
     Dates: start: 20220426
  9. IMODIUM [Concomitant]
     Active Substance: LOPERAMIDE HYDROCHLORIDE
     Dates: start: 20220531
  10. OLANZAPINE [Concomitant]
     Active Substance: OLANZAPINE
     Dates: start: 20220607
  11. BENADRYL [Concomitant]
     Active Substance: DIPHENHYDRAMINE HYDROCHLORIDE
     Dates: start: 20220710

REACTIONS (1)
  - Dyspnoea [Unknown]

NARRATIVE: CASE EVENT DATE: 20220802
